FAERS Safety Report 18383178 (Version 1)
Quarter: 2020Q4

REPORT INFORMATION
  Report Type: Spontaneous
  Country: US (occurrence: US)
  Receive Date: 20201014
  Receipt Date: 20201014
  Transmission Date: 20210114
  Serious: Yes (Disabling, Other)
  Sender: FDA-Public Use
  Company Number: US-PURDUE-USA-2020-0170169

PATIENT
  Sex: Male

DRUGS (1)
  1. OXYCODONE HYDROCHLORIDE (SIMILAR TO NDA 22-272) [Suspect]
     Active Substance: OXYCODONE HYDROCHLORIDE
     Indication: PAIN
     Dosage: UNK
     Route: 048

REACTIONS (12)
  - Emotional distress [Unknown]
  - Spinal disorder [Unknown]
  - Occipital neuralgia [Unknown]
  - General physical health deterioration [Unknown]
  - Lethargy [Unknown]
  - Anger [Unknown]
  - Drug dependence [Unknown]
  - Feeling abnormal [Unknown]
  - Fatigue [Unknown]
  - Affective disorder [Unknown]
  - Arthritis [Unknown]
  - Disability [Unknown]

NARRATIVE: CASE EVENT DATE: 2006
